FAERS Safety Report 7958237-0 (Version None)
Quarter: 2011Q4

REPORT INFORMATION
  Report Type: 
  Country: None (occurrence: None)
  Receive Date: 20111205
  Receipt Date: 20111130
  Transmission Date: 20120403
  Serious: Yes (Hospitalization)
  Sender: FDA-Public Use
  Company Number: CH-ROCHE-1004605

PATIENT
  Age: 77 Year
  Sex: Male
  Weight: 84 kg

DRUGS (2)
  1. BENDAMUSTINA [Concomitant]
  2. MABTHERA [Suspect]
     Indication: MANTLE CELL LYMPHOMA
     Route: 041
     Dates: start: 20110531, end: 20110712

REACTIONS (2)
  - PROGRESSIVE MULTIFOCAL LEUKOENCEPHALOPATHY [None]
  - HEMIPARESIS [None]
